FAERS Safety Report 5101023-X (Version None)
Quarter: 2006Q3

REPORT INFORMATION
  Report Type: 
  Country: None (occurrence: None)
  Receive Date: 20060906
  Receipt Date: 20060821
  Transmission Date: 20061208
  Serious: Yes (Other)
  Sender: FDA-Public Use
  Company Number: 2006R3-03362

PATIENT
  Age: 64 Year
  Sex: Female

DRUGS (5)
  1. LOVASTATIN(LOVASTATIN) TABLET, 20MG [Suspect]
     Indication: HYPERLIPIDAEMIA
     Dosage: ORAL
     Route: 048
  2. RANITIDINE [Suspect]
     Indication: GASTRITIS
     Dosage: ORAL
     Route: 048
  3. ASPIRIN [Suspect]
     Indication: ANTICOAGULANT THERAPY
     Dosage: ORAL
     Route: 048
  4. METOPROLOL [Suspect]
     Indication: HYPERTENSION
     Dosage: ORAL
     Route: 048
  5. ISOSORBIDE DINITRATE [Suspect]
     Indication: ANGINA PECTORIS
     Dosage: ORAL
     Route: 048

REACTIONS (4)
  - ARTHRALGIA [None]
  - PRURITUS [None]
  - RASH [None]
  - VISION BLURRED [None]
